FAERS Safety Report 9274446 (Version 2)
Quarter: 2013Q2

REPORT INFORMATION
  Report Type: Report from Study
  Country: DE (occurrence: DE)
  Receive Date: 20130506
  Receipt Date: 20130603
  Transmission Date: 20140414
  Serious: Yes (Hospitalization)
  Sender: FDA-Public Use
  Company Number: DE-ROCHE-1221460

PATIENT
  Sex: Female

DRUGS (2)
  1. BEVACIZUMAB [Suspect]
     Indication: BREAST CANCER
     Route: 065
  2. PACLITAXEL [Suspect]
     Indication: BREAST CANCER
     Route: 065

REACTIONS (2)
  - Dyspnoea [Unknown]
  - Pleural effusion [Unknown]
